FAERS Safety Report 20170191 (Version 1)
Quarter: 2021Q4

REPORT INFORMATION
  Report Type: Spontaneous
  Country: US (occurrence: None)
  Receive Date: 20211209
  Receipt Date: 20211209
  Transmission Date: 20220303
  Serious: Yes (Hospitalization)
  Sender: FDA-Public Use
  Company Number: None

PATIENT
  Age: 23 Year
  Sex: Female

DRUGS (1)
  1. NEULASTA [Suspect]
     Active Substance: PEGFILGRASTIM
     Indication: Acute myeloid leukaemia
     Dosage: OTHER FREQUENCY : DAY4 CYCLE;?
     Route: 058
     Dates: start: 20211106

REACTIONS (2)
  - Hospitalisation [None]
  - Chemotherapy [None]

NARRATIVE: CASE EVENT DATE: 20211101
